FAERS Safety Report 15014849 (Version 1)
Quarter: 2018Q2

REPORT INFORMATION
  Report Type: Spontaneous
  Country: US (occurrence: US)
  Receive Date: 20180615
  Receipt Date: 20180615
  Transmission Date: 20180711
  Serious: Yes (Hospitalization, Other)
  Sender: FDA-Public Use
  Company Number: US-AUROBINDO-AUR-APL-2018-031752

PATIENT
  Age: 78 Year
  Sex: Male

DRUGS (18)
  1. ROSUVASTATIN. [Suspect]
     Active Substance: ROSUVASTATIN
     Indication: PRODUCT USED FOR UNKNOWN INDICATION
     Dosage: 40 MILLIGRAM, ONCE A DAY, CHRONIC MEDICATION WITH OVER TWO YEARS OF EXPOSURE
     Route: 065
  2. WARFARIN [Concomitant]
     Active Substance: WARFARIN
     Indication: PRODUCT USED FOR UNKNOWN INDICATION
     Dosage: 2 MILLIGRAM, ONCE A DAY
     Route: 065
  3. ACETYLSALICYLIC ACID [Concomitant]
     Active Substance: ASPIRIN
     Indication: PRODUCT USED FOR UNKNOWN INDICATION
     Dosage: 325 MILLIGRAM, ONCE A DAY
     Route: 065
  4. CLOPIDOGREL [Concomitant]
     Active Substance: CLOPIDOGREL BISULFATE
     Indication: PRODUCT USED FOR UNKNOWN INDICATION
     Dosage: 75 MILLIGRAM, ONCE A DAY
     Route: 065
  5. BICALUTAMIDE. [Concomitant]
     Active Substance: BICALUTAMIDE
     Indication: HORMONE-REFRACTORY PROSTATE CANCER
     Dosage: UNK
     Route: 065
  6. FLUTAMIDE. [Concomitant]
     Active Substance: FLUTAMIDE
     Indication: HORMONE-REFRACTORY PROSTATE CANCER
     Dosage: UNK
     Route: 065
  7. LEUPRORELIN [Concomitant]
     Active Substance: LEUPROLIDE ACETATE
     Indication: HORMONE-REFRACTORY PROSTATE CANCER
     Dosage: 30 MILLIGRAM, EVERY 4 MONTHS.
     Route: 030
  8. MACROGOL [Concomitant]
     Active Substance: POLYETHYLENE GLYCOLS
     Indication: PRODUCT USED FOR UNKNOWN INDICATION
     Dosage: 17 GRAM, EVERY 3 DAYS.
     Route: 065
  9. METHYLPREDNISOLONE. [Concomitant]
     Active Substance: METHYLPREDNISOLONE
     Indication: HORMONE-REFRACTORY PROSTATE CANCER
     Dosage: 4 MILLIGRAM, EVERY 12 DAYS
     Route: 065
  10. CALCIUM CARBONATE. [Concomitant]
     Active Substance: CALCIUM CARBONATE
     Indication: PRODUCT USED FOR UNKNOWN INDICATION
     Dosage: 600 MILLIGRAM, ONCE A DAY
     Route: 065
  11. LOSARTAN. [Concomitant]
     Active Substance: LOSARTAN
     Indication: PRODUCT USED FOR UNKNOWN INDICATION
     Dosage: 12.5 MILLIGRAM, ONCE A DAY
     Route: 065
  12. KETOCONAZOLE. [Concomitant]
     Active Substance: KETOCONAZOLE
     Indication: HORMONE-REFRACTORY PROSTATE CANCER
     Dosage: UNK
     Route: 065
  13. PREDNISONE. [Concomitant]
     Active Substance: PREDNISONE
     Indication: PRODUCT USED FOR UNKNOWN INDICATION
     Dosage: 5 MILLIGRAM, TWO TIMES A DAY
     Route: 065
  14. ATENOLOL. [Concomitant]
     Active Substance: ATENOLOL
     Indication: PRODUCT USED FOR UNKNOWN INDICATION
     Dosage: 25 MILLIGRAM, ONCE A DAY
     Route: 065
  15. HYDROCORTISONE. [Concomitant]
     Active Substance: HYDROCORTISONE
     Indication: HORMONE-REFRACTORY PROSTATE CANCER
     Dosage: UNK
     Route: 065
  16. LEUPRORELIN [Concomitant]
     Active Substance: LEUPROLIDE ACETATE
     Indication: HORMONE-REFRACTORY PROSTATE CANCER
     Dosage: UNK
     Route: 065
  17. ABIRATERONE [Suspect]
     Active Substance: ABIRATERONE
     Indication: HORMONE-REFRACTORY PROSTATE CANCER
     Dosage: 1000 MILLIGRAM, ONCE A DAY
     Route: 065
  18. LORAZEPAM. [Concomitant]
     Active Substance: LORAZEPAM
     Indication: PRODUCT USED FOR UNKNOWN INDICATION
     Dosage: 0.5 MILLIGRAM, AS NECESSARY, NIGHTLY AS NEEDED
     Route: 065

REACTIONS (4)
  - Transaminases increased [Recovered/Resolved]
  - Acute kidney injury [Recovered/Resolved]
  - Failure to thrive [Recovered/Resolved]
  - Rhabdomyolysis [Recovered/Resolved]
